FAERS Safety Report 9162890 (Version 2)
Quarter: 2013Q1

REPORT INFORMATION
  Report Type: Spontaneous
  Country: GB (occurrence: None)
  Receive Date: 20130221
  Receipt Date: 20130320
  Transmission Date: 20140127
  Serious: Yes (Other)
  Sender: FDA-Public Use
  Company Number: GAM-033-13-GB

PATIENT
  Age: 68 Year
  Sex: Male

DRUGS (3)
  1. OCTAGAM [Suspect]
     Indication: PRODUCT USED FOR UNKNOWN INDICATION
     Dosage: INTRAVENOUS (NOT OTHERWISE SPECIFIED)
     Route: 042
  2. RITUXIMAB [Concomitant]
  3. AZATHIOPRINE [Concomitant]

REACTIONS (2)
  - Suspected transmission of an infectious agent via product [None]
  - Hepatitis B virus test positive [None]
